FAERS Safety Report 8201261-3 (Version None)
Quarter: 2012Q1

REPORT INFORMATION
  Report Type: 
  Country: None (occurrence: None)
  Receive Date: 20120312
  Receipt Date: 20120307
  Transmission Date: 20120608
  Serious: Yes (Death)
  Sender: FDA-Public Use
  Company Number: PHHY2012CO020364

PATIENT
  Sex: Male

DRUGS (3)
  1. SANDOSTATIN [Suspect]
     Indication: GASTROINTESTINAL DISORDER
  2. SANDOSTATIN [Suspect]
     Indication: ACROMEGALY
     Dosage: 20 MG PER DAY
     Route: 030
     Dates: start: 20110320, end: 20111110
  3. SANDOSTATIN [Suspect]
     Indication: NEUROENDOCRINE TUMOUR

REACTIONS (2)
  - METASTASES TO BONE [None]
  - MYELODYSPLASTIC SYNDROME [None]
